FAERS Safety Report 7967737-9 (Version None)
Quarter: 2011Q4

REPORT INFORMATION
  Report Type: 
  Country: None (occurrence: None)
  Receive Date: 20111209
  Receipt Date: 20111209
  Transmission Date: 20120403
  Serious: Yes (Hospitalization, Other)
  Sender: FDA-Public Use
  Company Number: None

PATIENT
  Age: 59 Year
  Sex: Female
  Weight: 83.5 kg

DRUGS (1)
  1. PRADAXA [Suspect]
     Indication: ATRIAL FIBRILLATION
     Dosage: 150 MG
     Route: 048
     Dates: start: 20110220, end: 20111129

REACTIONS (6)
  - PROCEDURAL COMPLICATION [None]
  - HAEMOPTYSIS [None]
  - PROCEDURAL HAEMORRHAGE [None]
  - HYPERTENSION [None]
  - HYPOXIA [None]
  - APNOEA [None]
